FAERS Safety Report 15771215 (Version 3)
Quarter: 2019Q1

REPORT INFORMATION
  Report Type: Spontaneous
  Country: US (occurrence: US)
  Receive Date: 20181228
  Receipt Date: 20190225
  Transmission Date: 20190417
  Serious: Yes (Life-Threatening, Hospitalization, Other)
  Sender: FDA-Public Use
  Company Number: US-PFIZER INC-2018529685

PATIENT
  Age: 50 Year
  Sex: Female
  Weight: 84 kg

DRUGS (24)
  1. AZELASTINE. [Concomitant]
     Active Substance: AZELASTINE HYDROCHLORIDE
     Indication: HYPERSENSITIVITY
     Dosage: UNK
  2. HYDROCORTISONE. [Concomitant]
     Active Substance: HYDROCORTISONE
     Indication: ADRENAL INSUFFICIENCY
     Dosage: 25 MG, DAILY (5 MG, TABLET, THREE TABLETS IN THE MORNING AND TWO TABLETS IN THE AFTERNOON OR IN THE)
  3. LEVOTHYROXINE. [Concomitant]
     Active Substance: LEVOTHYROXINE
     Indication: HYPOTHYROIDISM
     Dosage: 0.125 MG, 1X/DAY
  4. MONTELUKAST [Concomitant]
     Active Substance: MONTELUKAST SODIUM
     Indication: ASTHMA
     Dosage: 10 MG, 1X/DAY (ONE AT NIGHT)
  5. BACLOFEN. [Concomitant]
     Active Substance: BACLOFEN
     Indication: MULTIPLE SCLEROSIS
  6. LIOTHYRONINE [Concomitant]
     Active Substance: LIOTHYRONINE
     Indication: HYPOTHYROIDISM
     Dosage: 10 UG, 1X/DAY (5 UG, TABLET, TWO IN THE MORNING)
  7. AUBAGIO [Concomitant]
     Active Substance: TERIFLUNOMIDE
     Indication: MULTIPLE SCLEROSIS
     Dosage: 14 MG, 1X/DAY
  8. SPIRIVA [Concomitant]
     Active Substance: TIOTROPIUM BROMIDE MONOHYDRATE
     Dosage: UNK
  9. VENTOLIN HFA [Concomitant]
     Active Substance: ALBUTEROL SULFATE
     Indication: ASTHMA
     Dosage: UNK
  10. LYRICA [Suspect]
     Active Substance: PREGABALIN
     Indication: NERVE INJURY
     Dosage: 150 MG, DAILY
     Route: 048
     Dates: start: 2017
  11. LYRICA [Suspect]
     Active Substance: PREGABALIN
     Indication: NEUROPATHY PERIPHERAL
     Dosage: 150 MG, 3X/DAY
     Route: 048
     Dates: start: 2006
  12. ALENDRONATE [Concomitant]
     Active Substance: ALENDRONATE SODIUM
     Indication: OSTEOPOROSIS
     Dosage: 70 MG, WEEKLY
  13. ARIPIPRAZOLE. [Concomitant]
     Active Substance: ARIPIPRAZOLE
     Indication: DEPRESSION
     Dosage: 10 MG, 1X/DAY
  14. FLUTICASONE. [Concomitant]
     Active Substance: FLUTICASONE
     Indication: HYPERSENSITIVITY
     Dosage: UNK
  15. HIZENTRA [Concomitant]
     Active Substance: HUMAN IMMUNOGLOBULIN G
     Indication: IMMUNODEFICIENCY
     Dosage: UNK, WEEKLY (20 MG I MAKE IT 60 ML AND I DO AN INFUSION ONCE WEEKLY)
  16. MELOXICAM. [Concomitant]
     Active Substance: MELOXICAM
     Indication: MULTIPLE SCLEROSIS
  17. PANTOPRAZOLE [Concomitant]
     Active Substance: PANTOPRAZOLE
     Indication: GASTROOESOPHAGEAL REFLUX DISEASE
     Dosage: 40 MG, 1X/DAY (ONE IN THE MORNING)
  18. ARMODAFINIL. [Concomitant]
     Active Substance: ARMODAFINIL
     Indication: MULTIPLE SCLEROSIS
     Dosage: 250 MG, 1X/DAY
  19. LYRICA [Suspect]
     Active Substance: PREGABALIN
     Indication: NEURALGIA
  20. BACLOFEN. [Concomitant]
     Active Substance: BACLOFEN
     Indication: MUSCLE SPASMS
     Dosage: 10 MG, 2X/DAY (I CAN TAKE IT UP TO THREE TIMES A DAY, BUT I TAKE IT TWICE A DAY)
  21. ADVAIR HFA [Concomitant]
     Active Substance: FLUTICASONE PROPIONATE\SALMETEROL XINAFOATE
     Indication: ASTHMA
     Dosage: UNK
  22. IPRATROPIUM [Concomitant]
     Active Substance: IPRATROPIUM
     Indication: HYPERSENSITIVITY
     Dosage: UNK
  23. LAMOTRIGINE. [Concomitant]
     Active Substance: LAMOTRIGINE
     Indication: DEPRESSION
     Dosage: 300 MG, 1X/DAY (150 MG, TABLET, TWO AT NIGHT)
  24. MELOXICAM. [Concomitant]
     Active Substance: MELOXICAM
     Indication: MUSCLE SPASMS
     Dosage: 15 MG, 1X/DAY (15 MG, ONE AT NIGHT)

REACTIONS (17)
  - Brain injury [Unknown]
  - Agitation [Unknown]
  - Influenza like illness [Unknown]
  - Seizure [Unknown]
  - Tremor [Unknown]
  - Multiple sclerosis [Not Recovered/Not Resolved]
  - Respiratory failure [Unknown]
  - Insomnia [Unknown]
  - Pseudomonas infection [Unknown]
  - Pneumonia staphylococcal [Unknown]
  - Cystitis [Not Recovered/Not Resolved]
  - Hyperhidrosis [Unknown]
  - Malaise [Unknown]
  - Apparent death [Unknown]
  - Withdrawal syndrome [Unknown]
  - Nausea [Unknown]
  - Spinal disorder [Unknown]

NARRATIVE: CASE EVENT DATE: 2008
